FAERS Safety Report 10521681 (Version 1)
Quarter: 2014Q4

REPORT INFORMATION
  Report Type: Spontaneous
  Country: US (occurrence: None)
  Receive Date: 20141014
  Receipt Date: 20141014
  Transmission Date: 20150528
  Serious: No
  Sender: FDA-Public Use
  Company Number: 2014-0090

PATIENT
  Sex: Female

DRUGS (1)
  1. ZICAM COLD REMEDY NASAL GEL [Suspect]
     Active Substance: ZINC ACETATE\ZINC GLUCONATE
     Dosage: NASAL
     Route: 045

REACTIONS (1)
  - Anosmia [None]
